FAERS Safety Report 23907315 (Version 1)
Quarter: 2024Q2

REPORT INFORMATION
  Report Type: Spontaneous
  Country: US (occurrence: US)
  Receive Date: 20240528
  Receipt Date: 20240528
  Transmission Date: 20240716
  Serious: No
  Sender: FDA-Public Use
  Company Number: US-BIOGEN-2019BI00779754

PATIENT
  Age: 44 Year
  Sex: Female

DRUGS (3)
  1. TYSABRI [Suspect]
     Active Substance: NATALIZUMAB
     Indication: Multiple sclerosis
     Route: 050
     Dates: start: 20190823
  2. TYSABRI [Suspect]
     Active Substance: NATALIZUMAB
     Route: 050
     Dates: start: 20110404, end: 20151006
  3. TYSABRI [Suspect]
     Active Substance: NATALIZUMAB
     Route: 050
     Dates: start: 20081006, end: 20090527

REACTIONS (9)
  - Multiple sclerosis relapse [Unknown]
  - Nasopharyngitis [Unknown]
  - Central nervous system lesion [Unknown]
  - Lacrimation increased [Unknown]
  - Influenza like illness [Unknown]
  - Nasal pruritus [Recovered/Resolved]
  - Eyelids pruritus [Recovered/Resolved]
  - Dizziness [Unknown]
  - Pruritus [Recovered/Resolved]

NARRATIVE: CASE EVENT DATE: 20190823
